FAERS Safety Report 6968638-5 (Version None)
Quarter: 2010Q3

REPORT INFORMATION
  Report Type: 
  Country: None (occurrence: None)
  Receive Date: 20100907
  Receipt Date: 20100903
  Transmission Date: 20110219
  Serious: Yes (Hospitalization)
  Sender: FDA-Public Use
  Company Number: FR-SANOFI-AVENTIS-2010SA052997

PATIENT
  Sex: Female
  Weight: 55 kg

DRUGS (1)
  1. PLAQUENIL [Suspect]
     Route: 048
     Dates: start: 20100612, end: 20100705

REACTIONS (4)
  - ARTHRALGIA [None]
  - CONDITION AGGRAVATED [None]
  - CUTANEOUS LUPUS ERYTHEMATOSUS [None]
  - RASH MACULO-PAPULAR [None]
